FAERS Safety Report 10404752 (Version 2)
Quarter: 2014Q3

REPORT INFORMATION
  Report Type: Spontaneous
  Country: US (occurrence: US)
  Receive Date: 20140825
  Receipt Date: 20140825
  Transmission Date: 20150326
  Serious: Yes (Hospitalization, Other)
  Sender: FDA-Public Use
  Company Number: PHHY2014US099135

PATIENT
  Age: 57 Year
  Sex: Male

DRUGS (20)
  1. SIMVASTATIN. [Suspect]
     Active Substance: SIMVASTATIN
     Dosage: UNK UKN, UNK
  2. COLACE [Suspect]
     Active Substance: DOCUSATE SODIUM
     Dosage: UNK UKN, UNK
  3. FENTANYL. [Suspect]
     Active Substance: FENTANYL
     Dosage: UNK UKN, UNK
  4. XANAX [Suspect]
     Active Substance: ALPRAZOLAM
     Dosage: UNK UKN, UNK
  5. SENNA [Suspect]
     Active Substance: SENNA LEAF\SENNOSIDES\SENNOSIDES A AND B
     Dosage: UNK UKN, UNK
  6. ZYRTEC [Suspect]
     Active Substance: CETIRIZINE HYDROCHLORIDE
     Dosage: UNK UKN, UNK
  7. PERCOCET [Suspect]
     Active Substance: ACETAMINOPHEN\OXYCODONE HYDROCHLORIDE
     Dosage: UNK UKN, UNK
  8. NAPROXEN. [Suspect]
     Active Substance: NAPROXEN
     Dosage: UNK UKN, UNK
  9. KEPPRA [Suspect]
     Active Substance: LEVETIRACETAM
     Dosage: UNK UKN, UNK
  10. NORVASC [Suspect]
     Active Substance: AMLODIPINE BESYLATE
     Dosage: UNK UKN, UNK
  11. BACLOFEN. [Suspect]
     Active Substance: BACLOFEN
     Dosage: UNK UKN, UNK
  12. RESTORIL [Suspect]
     Active Substance: TEMAZEPAM
     Dosage: UNK UKN, UNK
  13. ACETYLSALICYLIC ACID [Suspect]
     Active Substance: ASPIRIN
     Dosage: UNK UKN, UNK
  14. DULCOLAX [Suspect]
     Active Substance: BISACODYL OR DOCUSATE SODIUM
     Dosage: UNK UKN, UNK
  15. CYMBALTA [Suspect]
     Active Substance: DULOXETINE HYDROCHLORIDE
     Dosage: UNK UKN, UNK
  16. MIRALAX [Suspect]
     Active Substance: POLYETHYLENE GLYCOL 3350
     Dosage: UNK UKN, UNK
  17. FAMOTIDINE. [Suspect]
     Active Substance: FAMOTIDINE
     Dosage: UNK UKN, UNK
  18. LYRICA [Suspect]
     Active Substance: PREGABALIN
     Dosage: UNK UKN, UNK
  19. LIORESAL [Suspect]
     Active Substance: BACLOFEN
     Indication: MUSCLE SPASTICITY
     Dosage: 840.2 UG, PER DAY
     Route: 037
  20. METOPROLOL [Suspect]
     Active Substance: METOPROLOL
     Dosage: UNK UKN, UNK

REACTIONS (2)
  - Convulsion [Recovering/Resolving]
  - Epilepsy [Recovering/Resolving]

NARRATIVE: CASE EVENT DATE: 20140727
